FAERS Safety Report 18204405 (Version 85)
Quarter: 2024Q4

REPORT INFORMATION
  Report Type: Report from Study
  Country: US (occurrence: US)
  Receive Date: 20200828
  Receipt Date: 20241202
  Transmission Date: 20250114
  Serious: Yes (Death, Hospitalization, Other)
  Sender: TAKEDA
  Company Number: US-SHIRE-US202027870

PATIENT
  Age: 55 Year
  Sex: Male
  Weight: 59 kg

DRUGS (104)
  1. .ALPHA.1-PROTEINASE INHIBITOR HUMAN [Suspect]
     Active Substance: .ALPHA.1-PROTEINASE INHIBITOR HUMAN
     Indication: Alpha-1 antitrypsin deficiency
     Dosage: 60 MILLIGRAM/KILOGRAM, 1/WEEK
     Dates: start: 20070201
  2. .ALPHA.1-PROTEINASE INHIBITOR HUMAN [Suspect]
     Active Substance: .ALPHA.1-PROTEINASE INHIBITOR HUMAN
     Dosage: 3345 MILLIGRAM, 1/WEEK
     Dates: start: 20070202
  3. .ALPHA.1-PROTEINASE INHIBITOR HUMAN [Suspect]
     Active Substance: .ALPHA.1-PROTEINASE INHIBITOR HUMAN
     Dosage: 40 GRAM, Q4WEEKS
     Dates: start: 20210209
  4. .ALPHA.1-PROTEINASE INHIBITOR HUMAN [Suspect]
     Active Substance: .ALPHA.1-PROTEINASE INHIBITOR HUMAN
     Dosage: 3357 MILLIGRAM, 1/WEEK
  5. .ALPHA.1-PROTEINASE INHIBITOR HUMAN [Suspect]
     Active Substance: .ALPHA.1-PROTEINASE INHIBITOR HUMAN
     Dosage: 3516 MILLIGRAM, 1/WEEK
  6. .ALPHA.1-PROTEINASE INHIBITOR HUMAN [Suspect]
     Active Substance: .ALPHA.1-PROTEINASE INHIBITOR HUMAN
     Dosage: UNK UNK, 1/WEEK
  7. .ALPHA.1-PROTEINASE INHIBITOR HUMAN [Suspect]
     Active Substance: .ALPHA.1-PROTEINASE INHIBITOR HUMAN
     Dosage: UNK UNK, Q4WEEKS
  8. .ALPHA.1-PROTEINASE INHIBITOR HUMAN [Suspect]
     Active Substance: .ALPHA.1-PROTEINASE INHIBITOR HUMAN
     Dosage: 60 MILLIGRAM/KILOGRAM, 1/WEEK
     Dates: start: 20240830
  9. .ALPHA.1-PROTEINASE INHIBITOR HUMAN [Suspect]
     Active Substance: .ALPHA.1-PROTEINASE INHIBITOR HUMAN
     Dosage: 60 MILLIGRAM/KILOGRAM, 1/WEEK
  10. .ALPHA.1-PROTEINASE INHIBITOR HUMAN [Suspect]
     Active Substance: .ALPHA.1-PROTEINASE INHIBITOR HUMAN
     Dosage: 60 MILLIGRAM/KILOGRAM, 1/WEEK
  11. GAMMAGARD LIQUID [Suspect]
     Active Substance: HUMAN IMMUNOGLOBULIN G
     Indication: Congenital hypogammaglobulinaemia
     Dosage: 40 GRAM, Q4WEEKS
     Dates: start: 20070201
  12. GAMMAGARD LIQUID [Suspect]
     Active Substance: HUMAN IMMUNOGLOBULIN G
     Indication: Immunodeficiency common variable
     Dosage: UNK UNK, 1/WEEK
     Dates: start: 20070202
  13. GAMMAGARD LIQUID [Suspect]
     Active Substance: HUMAN IMMUNOGLOBULIN G
     Dosage: 40 GRAM, Q4WEEKS
     Dates: start: 20210621
  14. HYQVIA [Suspect]
     Active Substance: HUMAN IMMUNOGLOBULIN G\HYALURONIDASE (HUMAN RECOMBINANT)
     Indication: Asthma
     Dosage: 40 GRAM, Q4WEEKS
     Dates: start: 20211028
  15. HYQVIA [Suspect]
     Active Substance: HUMAN IMMUNOGLOBULIN G\HYALURONIDASE (HUMAN RECOMBINANT)
     Indication: Alpha-1 antitrypsin deficiency
     Dosage: 40 GRAM
  16. HYQVIA [Suspect]
     Active Substance: HUMAN IMMUNOGLOBULIN G\HYALURONIDASE (HUMAN RECOMBINANT)
     Indication: Chronic obstructive pulmonary disease
  17. HYQVIA [Suspect]
     Active Substance: HUMAN IMMUNOGLOBULIN G\HYALURONIDASE (HUMAN RECOMBINANT)
     Indication: Congenital hypogammaglobulinaemia
  18. GLASSIA [Suspect]
     Active Substance: .ALPHA.1-PROTEINASE INHIBITOR HUMAN
     Indication: Alpha-1 antitrypsin deficiency
     Dosage: 60 MILLIGRAM/KILOGRAM, 1/WEEK
     Dates: start: 20240830
  19. GLASSIA [Suspect]
     Active Substance: .ALPHA.1-PROTEINASE INHIBITOR HUMAN
  20. HIZENTRA [Suspect]
     Active Substance: HUMAN IMMUNOGLOBULIN G
     Indication: Product used for unknown indication
     Dosage: UNK
  21. GAMUNEX-C [Suspect]
     Active Substance: HUMAN IMMUNOGLOBULIN G
     Indication: Product used for unknown indication
     Dosage: UNK
  22. EPINEPHRINE [Concomitant]
     Active Substance: EPINEPHRINE
     Dosage: UNK
  23. ACETAMINOPHEN [Concomitant]
     Active Substance: ACETAMINOPHEN
     Dosage: UNK
  24. CYCLOBENZAPRINE [Concomitant]
     Active Substance: CYCLOBENZAPRINE
     Dosage: UNK
  25. CRESTOR [Concomitant]
     Active Substance: ROSUVASTATIN CALCIUM
     Dosage: UNK
  26. TAMSULOSIN HYDROCHLORIDE [Concomitant]
     Active Substance: TAMSULOSIN HYDROCHLORIDE
     Dosage: UNK
  27. CONSTULOSE [Concomitant]
     Active Substance: LACTULOSE
     Dosage: UNK
  28. HYDROXYZINE HYDROCHLORIDE [Concomitant]
     Active Substance: HYDROXYZINE HYDROCHLORIDE
     Dosage: UNK
  29. DIPHENHYDRAMINE HYDROCHLORIDE [Concomitant]
     Active Substance: DIPHENHYDRAMINE HYDROCHLORIDE
     Dosage: UNK
  30. HEPARIN [Concomitant]
     Active Substance: HEPARIN SODIUM
     Dosage: UNK
  31. SODIUM CHLORIDE [Concomitant]
     Active Substance: SODIUM CHLORIDE
     Dosage: UNK
  32. NALOXONE HCL [Concomitant]
     Active Substance: NALOXONE HYDROCHLORIDE
     Dosage: UNK
  33. ALBUTEROL SULFATE [Concomitant]
     Active Substance: ALBUTEROL SULFATE
     Dosage: UNK
  34. LISINOPRIL [Concomitant]
     Active Substance: LISINOPRIL
     Dosage: UNK
  35. FINASTERIDE [Concomitant]
     Active Substance: FINASTERIDE
     Dosage: UNK
  36. PEPCID [Concomitant]
     Active Substance: FAMOTIDINE
     Dosage: UNK
  37. LIDOCAINE [Concomitant]
     Active Substance: LIDOCAINE
     Dosage: UNK
  38. TRAMADOL HCL [Concomitant]
     Active Substance: TRAMADOL HYDROCHLORIDE
     Dosage: UNK
  39. DICYCLOMINE HYDROCHLORIDE [Concomitant]
     Active Substance: DICYCLOMINE HYDROCHLORIDE
     Dosage: UNK
  40. NEURONTIN [Concomitant]
     Active Substance: GABAPENTIN
     Dosage: UNK
  41. HYOSCYAMINE SULFATE [Concomitant]
     Active Substance: HYOSCYAMINE SULFATE
     Dosage: UNK
  42. NIFEDIPINE [Concomitant]
     Active Substance: NIFEDIPINE
     Dosage: UNK
  43. STIOLTO RESPIMAT [Concomitant]
     Active Substance: OLODATEROL HYDROCHLORIDE\TIOTROPIUM BROMIDE MONOHYDRATE
     Dosage: UNK
  44. TYLENOL EXTRA STRENGTH [Concomitant]
     Active Substance: ACETAMINOPHEN
     Dosage: UNK
  45. URSODIOL [Concomitant]
     Active Substance: URSODIOL
     Dosage: UNK
  46. NITROLINGUAL [Concomitant]
     Active Substance: NITROGLYCERIN
     Dosage: UNK
  47. OXYGEN [Concomitant]
     Active Substance: OXYGEN
     Dosage: UNK
  48. ROSUVASTATIN CALCIUM [Concomitant]
     Active Substance: ROSUVASTATIN CALCIUM
     Dosage: UNK
  49. PROAIR HFA [Concomitant]
     Active Substance: ALBUTEROL SULFATE
     Dosage: UNK
  50. TAMSULOSIN HYDROCHLORIDE [Concomitant]
     Active Substance: TAMSULOSIN HYDROCHLORIDE
     Dosage: UNK
  51. LOSARTAN POTASSIUM [Concomitant]
     Active Substance: LOSARTAN POTASSIUM
     Dosage: UNK
  52. PROAIR HFA [Concomitant]
     Active Substance: ALBUTEROL SULFATE
     Dosage: UNK
  53. IPRATROPIUM BROMIDE AND ALBUTEROL SULFATE [Concomitant]
     Active Substance: ALBUTEROL SULFATE\IPRATROPIUM BROMIDE
     Dosage: UNK
  54. ELIQUIS [Concomitant]
     Active Substance: APIXABAN
     Dosage: UNK
  55. PANTOPRAZOLE SODIUM [Concomitant]
     Active Substance: PANTOPRAZOLE SODIUM
     Dosage: UNK
  56. XANAX [Concomitant]
     Active Substance: ALPRAZOLAM
     Dosage: UNK
  57. METHOCARBAMOL [Concomitant]
     Active Substance: METHOCARBAMOL
     Dosage: UNK
  58. NEXIUM [Concomitant]
     Active Substance: ESOMEPRAZOLE MAGNESIUM
     Dosage: UNK
  59. BROMITANE [Concomitant]
     Dosage: UNK
  60. PEPTO-BISMOL [Concomitant]
     Active Substance: BISMUTH SUBSALICYLATE
     Dosage: UNK
  61. ASMANEX [Concomitant]
     Active Substance: MOMETASONE FUROATE
     Dosage: UNK
  62. CLARITIN [Concomitant]
     Active Substance: LORATADINE
     Dosage: UNK
  63. HYDROCODONE BITARTRATE AND ACETAMINOPHEN [Concomitant]
     Active Substance: ACETAMINOPHEN\HYDROCODONE BITARTRATE
     Dosage: UNK
  64. SINGULAIR [Concomitant]
     Active Substance: MONTELUKAST SODIUM
     Dosage: UNK
  65. ROBAXIN [Concomitant]
     Active Substance: METHOCARBAMOL
     Dosage: UNK
  66. DOXYCYCLINE [Concomitant]
     Active Substance: DOXYCYCLINE
     Dosage: UNK
  67. MUCINEX [Concomitant]
     Active Substance: GUAIFENESIN
     Dosage: UNK
  68. FLUTICASONE [Concomitant]
     Active Substance: FLUTICASONE
     Dosage: UNK
  69. SPIRIVA RESPIMAT [Concomitant]
     Active Substance: TIOTROPIUM BROMIDE
     Dosage: UNK
  70. SYMBICORT [Concomitant]
     Active Substance: BUDESONIDE\FORMOTEROL FUMARATE DIHYDRATE
     Dosage: UNK
  71. PREGABALIN [Concomitant]
     Active Substance: PREGABALIN
     Dosage: UNK
  72. MYRBETRIQ [Concomitant]
     Active Substance: MIRABEGRON
     Dosage: UNK
  73. RISEDRONATE SODIUM [Concomitant]
     Active Substance: RISEDRONATE SODIUM
     Dosage: UNK
  74. BUSPIRONE [Concomitant]
     Active Substance: BUSPIRONE HYDROCHLORIDE
     Dosage: UNK
  75. SODIUM CHLORIDE [Concomitant]
     Active Substance: SODIUM CHLORIDE
     Dosage: UNK
  76. CILOSTAZOL [Concomitant]
     Active Substance: CILOSTAZOL
     Dosage: UNK
  77. SILODOSIN [Concomitant]
     Active Substance: SILODOSIN
     Dosage: UNK
  78. LEVOFLOXACIN [Concomitant]
     Active Substance: LEVOFLOXACIN
     Dosage: UNK
  79. PEPCID [Concomitant]
     Active Substance: FAMOTIDINE
     Dosage: UNK
  80. PERCOCET [Concomitant]
     Active Substance: ACETAMINOPHEN\OXYCODONE HYDROCHLORIDE
     Dosage: UNK
  81. XARELTO [Concomitant]
     Active Substance: RIVAROXABAN
     Dosage: UNK
  82. PLAVIX [Concomitant]
     Active Substance: CLOPIDOGREL BISULFATE
     Dosage: UNK
  83. VITAMIN D3 [Concomitant]
     Active Substance: CHOLECALCIFEROL
     Dosage: UNK
  84. CYMBALTA [Concomitant]
     Active Substance: DULOXETINE HYDROCHLORIDE
     Dosage: UNK
  85. FAMOTIDINE [Concomitant]
     Active Substance: FAMOTIDINE
     Dosage: UNK
  86. MINERALS\VITAMINS [Concomitant]
     Active Substance: MINERALS\VITAMINS
     Dosage: UNK
  87. FLOMAX [Concomitant]
     Active Substance: TAMSULOSIN HYDROCHLORIDE
     Dosage: UNK
  88. TRAMADOL [Concomitant]
     Active Substance: TRAMADOL
     Dosage: UNK
  89. MACROBID [Concomitant]
     Active Substance: NITROFURANTOIN\NITROFURANTOIN MONOHYDRATE
     Dosage: UNK
  90. CITALOPRAM HYDROBROMIDE [Concomitant]
     Active Substance: CITALOPRAM HYDROBROMIDE
     Dosage: UNK
  91. ROSUVASTATIN [Concomitant]
     Active Substance: ROSUVASTATIN
     Dosage: UNK
  92. GAMUNEX [Concomitant]
     Active Substance: HUMAN IMMUNOGLOBULIN G
     Dosage: UNK
  93. FOSFOMYCIN TROMETHAMINE [Concomitant]
     Active Substance: FOSFOMYCIN TROMETHAMINE
     Dosage: UNK
  94. FLUCONAZOLE [Concomitant]
     Active Substance: FLUCONAZOLE
     Dosage: UNK
  95. Lmx [Concomitant]
     Dosage: UNK
  96. SORBITOL [Concomitant]
     Active Substance: SORBITOL
     Dosage: UNK
  97. LINZESS [Concomitant]
     Active Substance: LINACLOTIDE
     Dosage: UNK
  98. AMLODIPINE BESYLATE [Concomitant]
     Active Substance: AMLODIPINE BESYLATE
     Dosage: UNK
  99. NALOXONE [Concomitant]
     Active Substance: NALOXONE
     Dosage: UNK
  100. DICYCLOMINE [Concomitant]
     Active Substance: DICYCLOMINE HYDROCHLORIDE
     Dosage: UNK
  101. HYDROXYZINE [Concomitant]
     Active Substance: HYDROXYZINE HYDROCHLORIDE
     Dosage: UNK
  102. ALBUTEROL [Concomitant]
     Active Substance: ALBUTEROL
     Dosage: UNK
  103. DILTIAZEM [Concomitant]
     Active Substance: DILTIAZEM
     Dosage: UNK
  104. DULOXETINE HYDROCHLORIDE [Concomitant]
     Active Substance: DULOXETINE HYDROCHLORIDE

REACTIONS (83)
  - Death [Fatal]
  - Bladder disorder [Unknown]
  - Prostatic disorder [Unknown]
  - Post procedural complication [Unknown]
  - Dysuria [Unknown]
  - Blood urine present [Unknown]
  - Pneumothorax [Not Recovered/Not Resolved]
  - Spinal compression fracture [Unknown]
  - Neuropathy peripheral [Unknown]
  - Intestinal obstruction [Unknown]
  - Epididymitis [Unknown]
  - Arrhythmia [Unknown]
  - Chronic obstructive pulmonary disease [Unknown]
  - Chest pain [Unknown]
  - Back pain [Unknown]
  - Catheter site haemorrhage [Unknown]
  - Infusion site erythema [Unknown]
  - Infusion site swelling [Unknown]
  - Cancer pain [Unknown]
  - Heart rate increased [Unknown]
  - Gastrointestinal disorder [Unknown]
  - Paraesthesia [Unknown]
  - Insurance issue [Unknown]
  - Burning sensation [Unknown]
  - Abdominal discomfort [Unknown]
  - Skin discolouration [Unknown]
  - Hypertension [Unknown]
  - Muscle tightness [Unknown]
  - Constipation [Not Recovered/Not Resolved]
  - Prostatomegaly [Unknown]
  - Neuralgia [Unknown]
  - Procedural anxiety [Unknown]
  - Discouragement [Unknown]
  - Drug intolerance [Unknown]
  - Infusion site warmth [Unknown]
  - Angiopathy [Unknown]
  - Urinary tract infection [Unknown]
  - Gait disturbance [Unknown]
  - Testicular pain [Unknown]
  - Obstruction [Unknown]
  - Productive cough [Unknown]
  - Pain in extremity [Unknown]
  - Abdominal pain upper [Unknown]
  - Procedural pain [Unknown]
  - Infection [Unknown]
  - Sputum discoloured [Unknown]
  - Pelvic discomfort [Unknown]
  - Respiratory tract congestion [Unknown]
  - Back disorder [Unknown]
  - General physical health deterioration [Not Recovered/Not Resolved]
  - Pyrexia [Unknown]
  - Pain [Unknown]
  - Anxiety [Unknown]
  - Prostatitis [Not Recovered/Not Resolved]
  - Influenza like illness [Unknown]
  - Pain in jaw [Unknown]
  - Tooth abscess [Unknown]
  - Respiratory tract infection [Unknown]
  - Nervous system disorder [Recovering/Resolving]
  - Urinary tract disorder [Unknown]
  - Bacterial infection [Unknown]
  - Product dose omission issue [Unknown]
  - Incorrect drug administration rate [Unknown]
  - Product use issue [Unknown]
  - Product use in unapproved indication [Unknown]
  - Inappropriate schedule of product administration [Unknown]
  - Drug ineffective [Not Recovered/Not Resolved]
  - Gastrointestinal sounds abnormal [Unknown]
  - Chills [Unknown]
  - Asthenia [Unknown]
  - Malaise [Unknown]
  - Nervousness [Unknown]
  - Flushing [Recovered/Resolved]
  - Asthma [Unknown]
  - Hypoaesthesia [Unknown]
  - Abdominal pain [Unknown]
  - Bronchitis [Unknown]
  - Dyspnoea [Unknown]
  - Upper respiratory tract infection [Unknown]
  - Cough [Unknown]
  - Fatigue [Unknown]
  - Nausea [Unknown]
  - Headache [Unknown]

NARRATIVE: CASE EVENT DATE: 20210928
